FAERS Safety Report 8487504-X (Version None)
Quarter: 2012Q3

REPORT INFORMATION
  Report Type: 
  Country: None (occurrence: None)
  Receive Date: 20120705
  Receipt Date: 20120628
  Transmission Date: 20120928
  Serious: Yes (Other)
  Sender: FDA-Public Use
  Company Number: BR-US-EMD SERONO, INC.-7135009

PATIENT
  Sex: Female

DRUGS (2)
  1. REBIF [Suspect]
     Indication: RELAPSING-REMITTING MULTIPLE SCLEROSIS
     Dates: start: 20120412, end: 20120514
  2. REBIF [Suspect]
     Dates: start: 20120611

REACTIONS (8)
  - PSYCHOTIC DISORDER [None]
  - CEREBRAL THROMBOSIS [None]
  - SYNCOPE [None]
  - INSOMNIA [None]
  - SOMNOLENCE [None]
  - COGNITIVE DISORDER [None]
  - DECREASED APPETITE [None]
  - INFLUENZA LIKE ILLNESS [None]
